FAERS Safety Report 12759273 (Version 1)
Quarter: 2016Q3

REPORT INFORMATION
  Report Type: Spontaneous
  Country: US (occurrence: US)
  Receive Date: 20160916
  Receipt Date: 20160916
  Transmission Date: 20161109
  Serious: No
  Sender: FDA-Public Use
  Company Number: None

PATIENT
  Sex: Female

DRUGS (1)
  1. SYNVISC [Suspect]
     Active Substance: HYALURONATE SODIUM
     Route: 013

REACTIONS (4)
  - Musculoskeletal stiffness [None]
  - Post procedural complication [None]
  - Gait disturbance [None]
  - Pain [None]
